FAERS Safety Report 8428108-4 (Version None)
Quarter: 2012Q2

REPORT INFORMATION
  Report Type: 
  Country: None (occurrence: None)
  Receive Date: 20120611
  Receipt Date: 20120528
  Transmission Date: 20120825
  Serious: Yes (Hospitalization)
  Sender: FDA-Public Use
  Company Number: ZA-ROCHE-1072930

PATIENT
  Sex: Female
  Weight: 82.2 kg

DRUGS (11)
  1. STILPANE TABLETS [Concomitant]
     Dates: start: 20100101
  2. PREDNISOLONE [Concomitant]
     Dates: start: 20110623
  3. PLACEBO [Suspect]
     Indication: RHEUMATOID ARTHRITIS
     Dosage: LAST DOSE PRIOR TO SAE: 18/MAY/2012
     Route: 048
     Dates: start: 20110304, end: 20120525
  4. AMITRIPTYLINE HCL [Concomitant]
     Dates: start: 20070101
  5. ASPIRIN [Concomitant]
     Dates: start: 20120330
  6. CELEBREX [Concomitant]
     Dates: start: 20100101
  7. CHOLECALCIFEROL [Concomitant]
     Dates: start: 20110304
  8. NUZAK [Concomitant]
     Dates: start: 20110729
  9. ACTEMRA [Suspect]
     Indication: RHEUMATOID ARTHRITIS
     Dosage: LAST DOSE PRIOR TO SAE:26/APR/2012
     Route: 042
     Dates: start: 20110304, end: 20120525
  10. FOLIC ACID [Concomitant]
     Dates: start: 20110304
  11. BRAZEPAM [Concomitant]
     Dates: start: 20110916

REACTIONS (2)
  - AORTIC ARTERIOSCLEROSIS [None]
  - ARTERIOSCLEROSIS [None]
